FAERS Safety Report 11514505 (Version 4)
Quarter: 2016Q1

REPORT INFORMATION
  Report Type: Spontaneous
  Country: JP (occurrence: JP)
  Receive Date: 20150916
  Receipt Date: 20160114
  Transmission Date: 20160525
  Serious: Yes (Hospitalization, Other)
  Sender: FDA-Public Use
  Company Number: JP-GLAXOSMITHKLINE-JP2015JPN130260

PATIENT
  Age: 33 Year
  Sex: Female
  Weight: 52 kg

DRUGS (4)
  1. LAMICTAL [Suspect]
     Active Substance: LAMOTRIGINE
     Indication: EPILEPSY
     Dosage: 25 MG, QOD
     Route: 048
     Dates: start: 20150327, end: 20150410
  2. LAMICTAL [Suspect]
     Active Substance: LAMOTRIGINE
     Dosage: 50 MG, BID
     Route: 048
     Dates: start: 20150425, end: 20150508
  3. LAMICTAL [Suspect]
     Active Substance: LAMOTRIGINE
     Dosage: 50 MG, QOD
     Route: 048
     Dates: start: 20150411, end: 20150425
  4. DEPAKENE [Concomitant]
     Active Substance: VALPROIC ACID
     Indication: EPILEPSY
     Dosage: 300 MG, BID

REACTIONS (16)
  - Drug reaction with eosinophilia and systemic symptoms [Recovered/Resolved]
  - Pyrexia [Unknown]
  - Pharyngeal erythema [Unknown]
  - Rash pruritic [Unknown]
  - Lymph node pain [Unknown]
  - Malaise [Unknown]
  - Lymphadenopathy [Unknown]
  - Oedema [Recovering/Resolving]
  - Hepatic function abnormal [Unknown]
  - Erythema [Recovering/Resolving]
  - Drug eruption [Unknown]
  - Oral papule [Unknown]
  - Hepatic enzyme increased [Unknown]
  - Erythema [Recovered/Resolved]
  - Rash generalised [Recovering/Resolving]
  - Papule [Recovering/Resolving]

NARRATIVE: CASE EVENT DATE: 201505
